FAERS Safety Report 7275906-9 (Version None)
Quarter: 2011Q1

REPORT INFORMATION
  Report Type: 
  Country: None (occurrence: None)
  Receive Date: 20110204
  Receipt Date: 20110128
  Transmission Date: 20110831
  Serious: Yes (Hospitalization)
  Sender: FDA-Public Use
  Company Number: A0788955A

PATIENT
  Age: 65 Year
  Sex: Female

DRUGS (6)
  1. ATENOLOL [Concomitant]
  2. PREVACID [Concomitant]
  3. FUROSEMIDE [Concomitant]
  4. AVANDIA [Suspect]
     Route: 048
     Dates: start: 20030101, end: 20080101
  5. TRIAMTERENE [Concomitant]
  6. GLIPIZIDE [Concomitant]

REACTIONS (1)
  - ACUTE MYOCARDIAL INFARCTION [None]
